FAERS Safety Report 14980050 (Version 1)
Quarter: 2018Q2

REPORT INFORMATION
  Report Type: Spontaneous
  Country: DE (occurrence: DE)
  Receive Date: 20180606
  Receipt Date: 20180606
  Transmission Date: 20180711
  Serious: Yes (Other)
  Sender: FDA-Public Use
  Company Number: DE-ANIPHARMA-2018-DE-000102

PATIENT
  Age: 65 Year
  Sex: Male

DRUGS (11)
  1. CLEMASTINE FUMARATE (NON-SPECIFIC) [Suspect]
     Active Substance: CLEMASTINE FUMARATE
  2. BUSULFAN. [Concomitant]
     Active Substance: BUSULFAN
  3. FLUDARABINE [Concomitant]
     Active Substance: FLUDARABINE PHOSPHATE
  4. LEVOFLOXACIN. [Suspect]
     Active Substance: LEVOFLOXACIN
  5. METRONIDAZOLE. [Suspect]
     Active Substance: METRONIDAZOLE
  6. AMPHOTERICIN-B LIPOSOMAL [Suspect]
     Active Substance: AMPHOTERICIN B
  7. CYCLOPHOSPHAMIDE. [Concomitant]
     Active Substance: CYCLOPHOSPHAMIDE
  8. AMSACRINE [Suspect]
     Active Substance: AMSACRINE
     Route: 042
  9. FUROSEMIDE. [Suspect]
     Active Substance: FUROSEMIDE
  10. ONDANSETRON [Suspect]
     Active Substance: ONDANSETRON
  11. CYTARABINE. [Concomitant]
     Active Substance: CYTARABINE

REACTIONS (4)
  - Long QT syndrome [Unknown]
  - Torsade de pointes [Unknown]
  - Cardiac arrest [Unknown]
  - Electrocardiogram T wave biphasic [None]
